FAERS Safety Report 5028898-7 (Version None)
Quarter: 2006Q2

REPORT INFORMATION
  Report Type: 
  Country: None (occurrence: None)
  Receive Date: 20060619
  Receipt Date: 20060602
  Transmission Date: 20061013
  Serious: Yes (Hospitalization, Other)
  Sender: FDA-Public Use
  Company Number: US-GLAXOSMITHKLINE-A0607776A

PATIENT
  Age: 38 Year
  Sex: Female

DRUGS (2)
  1. LAMICTAL [Suspect]
     Indication: BIPOLAR DISORDER
     Route: 048
     Dates: start: 20060123
  2. UNKNOWN [Concomitant]

REACTIONS (6)
  - CATATONIA [None]
  - CONVULSION [None]
  - DIPLOPIA [None]
  - OVERDOSE [None]
  - TREMOR [None]
  - VOMITING [None]
